FAERS Safety Report 6579870-7 (Version None)
Quarter: 2010Q1

REPORT INFORMATION
  Report Type: 
  Country: None (occurrence: None)
  Receive Date: 20100209
  Receipt Date: 20100209
  Transmission Date: 20100710
  Serious: Yes (Other)
  Sender: FDA-Public Use
  Company Number: None

PATIENT
  Age: 36 Year
  Sex: Male

DRUGS (2)
  1. GEODON [Suspect]
  2. LITHIUM 900 MG [Suspect]

REACTIONS (4)
  - COLOUR BLINDNESS [None]
  - CONFUSIONAL STATE [None]
  - SEXUAL DYSFUNCTION [None]
  - VISION BLURRED [None]
